FAERS Safety Report 9269731 (Version 3)
Quarter: 2013Q3

REPORT INFORMATION
  Report Type: Spontaneous
  Country: US (occurrence: US)
  Receive Date: 20130503
  Receipt Date: 20130701
  Transmission Date: 20140515
  Serious: Yes (Other)
  Sender: FDA-Public Use
  Company Number: US-TEVA-402342USA

PATIENT
  Sex: Female

DRUGS (6)
  1. PROAIR HFA [Suspect]
     Route: 055
  2. GABAPENTIN [Concomitant]
  3. VIIBRYD [Concomitant]
  4. BUSPIRONE [Concomitant]
  5. SYNTHROID [Concomitant]
  6. CYTOMEL [Concomitant]

REACTIONS (2)
  - Choking [Recovered/Resolved]
  - Cough [Unknown]
